FAERS Safety Report 7187543-5 (Version None)
Quarter: 2010Q4

REPORT INFORMATION
  Report Type: 
  Country: None (occurrence: None)
  Receive Date: 20101222
  Receipt Date: 20100629
  Transmission Date: 20110411
  Serious: No
  Sender: FDA-Public Use
  Company Number: US-AMGEN-KDL421271

PATIENT

DRUGS (11)
  1. ENBREL [Suspect]
     Indication: PRODUCT USED FOR UNKNOWN INDICATION
     Dosage: 50 MG, QWK
     Route: 058
  2. AMLODIPINE [Concomitant]
     Dosage: 2.5 MG, UNK
  3. METHOTREXATE [Concomitant]
     Dosage: 2.5 MG, UNK
  4. OMEPRAZOLE [Concomitant]
     Dosage: 20 MG, UNK
  5. FOLIC ACID [Concomitant]
     Dosage: 1 MG, UNK
  6. BUPROPION HYDROCHLORIDE [Concomitant]
     Dosage: 150 MG, UNK
  7. CALCIUM [Concomitant]
     Dosage: UNK UNK, UNK
  8. ERGOCALCIFEROL [Concomitant]
     Dosage: 400 IU, UNK
  9. LYSINE [Concomitant]
     Dosage: 500 MG, UNK
  10. GLUCOSAMINE W/CHONDROITIN SULFATES [Concomitant]
     Dosage: UNK UNK, UNK
  11. SULFASALAZINE [Concomitant]
     Dosage: 500 MG, UNK

REACTIONS (4)
  - BRONCHITIS [None]
  - INFLUENZA [None]
  - INJECTION SITE HAEMATOMA [None]
  - INJECTION SITE SWELLING [None]
